FAERS Safety Report 7768045-1 (Version None)
Quarter: 2011Q3

REPORT INFORMATION
  Report Type: 
  Country: None (occurrence: None)
  Receive Date: 20110922
  Receipt Date: 20101222
  Transmission Date: 20111222
  Serious: Yes (Hospitalization)
  Sender: FDA-Public Use
  Company Number: US-ASTRAZENECA-2010SE60799

PATIENT
  Age: 19 Year
  Sex: Male

DRUGS (4)
  1. HALDOL [Concomitant]
  2. SEROQUEL XR [Suspect]
     Indication: SCHIZOAFFECTIVE DISORDER
     Route: 048
  3. ZYPREXA [Concomitant]
  4. BENZODIAZAPINE [Concomitant]

REACTIONS (4)
  - PARANOIA [None]
  - PSYCHOTIC DISORDER [None]
  - ABNORMAL BEHAVIOUR [None]
  - DRUG DOSE OMISSION [None]
